FAERS Safety Report 6716500-5 (Version None)
Quarter: 2010Q2

REPORT INFORMATION
  Report Type: 
  Country: None (occurrence: None)
  Receive Date: 20100507
  Receipt Date: 20100426
  Transmission Date: 20101027
  Serious: Yes (Death)
  Sender: FDA-Public Use
  Company Number: US-ELI_LILLY_AND_COMPANY-US201001004666

PATIENT
  Sex: Female
  Weight: 54.875 kg

DRUGS (7)
  1. FORTEO [Suspect]
     Indication: OSTEOPOROSIS
     Dosage: UNK, DAILY (1/D)
  2. NORVASC [Concomitant]
     Dosage: 10 MG, UNKNOWN
  3. XANAX [Concomitant]
     Dosage: 0.25 MG, UNKNOWN
  4. DESOWEN [Concomitant]
     Dosage: 0.05 %, UNKNOWN
     Route: 061
  5. PERCOCET [Concomitant]
     Dosage: UNK D/F, UNKNOWN
  6. ATENOLOL [Concomitant]
     Dosage: 25 MG, WEEKLY (1/W)
  7. HYDROCORTISONE [Concomitant]
     Dosage: 25 MG, UNK
     Route: 054

REACTIONS (3)
  - CARDIAC ARREST [None]
  - HYPERTENSION [None]
  - SPINAL COLUMN STENOSIS [None]
